FAERS Safety Report 7574819-2 (Version None)
Quarter: 2011Q2

REPORT INFORMATION
  Report Type: 
  Country: None (occurrence: None)
  Receive Date: 20110627
  Receipt Date: 20110613
  Transmission Date: 20111010
  Serious: Yes (Other)
  Sender: FDA-Public Use
  Company Number: JP-NOVOPROD-329908

PATIENT
  Sex: Male

DRUGS (5)
  1. LEVEMIR [Suspect]
     Indication: DIABETES MELLITUS
     Dosage: UNK
     Route: 058
     Dates: start: 20100601, end: 20110201
  2. APIDRA [Concomitant]
     Dosage: UNK
     Dates: start: 20110301
  3. NOVORAPID CHU PENFILL [Suspect]
     Indication: DIABETES MELLITUS
     Dosage: UNK
     Route: 058
     Dates: start: 20100601, end: 20110201
  4. LANTUS [Concomitant]
     Dosage: UNK
     Dates: end: 20100601
  5. LANTUS [Concomitant]
     Dosage: UNK
     Dates: start: 20110301

REACTIONS (2)
  - ANTI-INSULIN ANTIBODY POSITIVE [None]
  - DIABETES MELLITUS INADEQUATE CONTROL [None]
